FAERS Safety Report 6752266-0 (Version None)
Quarter: 2010Q2

REPORT INFORMATION
  Report Type: 
  Country: None (occurrence: None)
  Receive Date: 20100602
  Receipt Date: 20100519
  Transmission Date: 20101027
  Serious: Yes (Hospitalization)
  Sender: FDA-Public Use
  Company Number: US-JNJFOC-20100508479

PATIENT
  Sex: Male
  Weight: 11.8 kg

DRUGS (5)
  1. BLINDED; INFLIXIMAB, RECOMBINANT [Suspect]
     Indication: KAWASAKI'S DISEASE
     Dosage: 24 GRAMS
     Route: 042
  2. PLACEBO [Suspect]
     Indication: KAWASAKI'S DISEASE
     Dosage: 24 GRAMS
     Route: 042
  3. IMMUNE GLOBULIN NOS [Concomitant]
     Indication: KAWASAKI'S DISEASE
     Route: 042
  4. ACETAMINOPHEN [Concomitant]
     Indication: PREMEDICATION
  5. DIPHENHYDRAMINE HYDROCHLORIDE [Concomitant]
     Indication: PREMEDICATION

REACTIONS (2)
  - CORONARY ARTERY ANEURYSM [None]
  - CORONARY ARTERY DILATATION [None]
